FAERS Safety Report 7769713-8 (Version None)
Quarter: 2011Q3

REPORT INFORMATION
  Report Type: 
  Country: None (occurrence: None)
  Receive Date: 20110922
  Receipt Date: 20110722
  Transmission Date: 20111222
  Serious: No
  Sender: FDA-Public Use
  Company Number: US-ASTRAZENECA-2011SE44173

PATIENT
  Age: 35 Year
  Sex: Female
  Weight: 90.7 kg

DRUGS (6)
  1. SEROQUEL [Suspect]
     Indication: SLEEP DISORDER
     Dosage: 100 MG IN THE MORNING, 300 MG IN THE EVENING
     Route: 048
     Dates: start: 20000101, end: 20110720
  2. DIAZEPAM [Concomitant]
  3. TRAZODONE HCL [Concomitant]
  4. SEROQUEL [Suspect]
     Indication: BIPOLAR DISORDER
     Dosage: 100 MG IN THE MORNING, 300 MG IN THE EVENING
     Route: 048
     Dates: start: 20000101, end: 20110720
  5. SEROQUEL [Suspect]
     Indication: ANXIETY
     Dosage: 100 MG IN THE MORNING, 300 MG IN THE EVENING
     Route: 048
     Dates: start: 20000101, end: 20110720
  6. PRISTIQ [Concomitant]

REACTIONS (6)
  - INSOMNIA [None]
  - DIARRHOEA [None]
  - ABDOMINAL DISCOMFORT [None]
  - MOOD ALTERED [None]
  - DRUG DOSE OMISSION [None]
  - DIZZINESS [None]
